FAERS Safety Report 9729456 (Version 2)
Quarter: 2015Q3

REPORT INFORMATION
  Report Type: Spontaneous
  Country: US (occurrence: US)
  Receive Date: 20131204
  Receipt Date: 20150804
  Transmission Date: 20151125
  Serious: No
  Sender: FDA-Public Use
  Company Number: US-GILEAD-2009-0021464

PATIENT
  Age: 77 Year
  Sex: Female

DRUGS (8)
  1. DEMADEX [Concomitant]
     Active Substance: TORSEMIDE
     Dates: start: 20080922
  2. REVATIO [Concomitant]
     Active Substance: SILDENAFIL CITRATE
     Dates: start: 20080922
  3. DILTIAZEM [Concomitant]
     Active Substance: DILTIAZEM
     Dates: start: 20080922
  4. LIPITOR [Concomitant]
     Active Substance: ATORVASTATIN CALCIUM
     Dates: start: 20080922
  5. LETAIRIS [Suspect]
     Active Substance: AMBRISENTAN
     Route: 048
     Dates: start: 20070920, end: 20071214
  6. LETAIRIS [Suspect]
     Active Substance: AMBRISENTAN
     Indication: PULMONARY ARTERIAL HYPERTENSION
     Route: 048
     Dates: start: 20071214
  7. COZAAR [Concomitant]
     Active Substance: LOSARTAN POTASSIUM
     Dates: start: 20080922
  8. HYDROXYUREA. [Concomitant]
     Active Substance: HYDROXYUREA
     Dates: start: 20080922

REACTIONS (1)
  - Red blood cell count decreased [Not Recovered/Not Resolved]
